FAERS Safety Report 24727228 (Version 5)
Quarter: 2025Q1

REPORT INFORMATION
  Report Type: Spontaneous
  Country: US (occurrence: US)
  Receive Date: 20241212
  Receipt Date: 20250225
  Transmission Date: 20250409
  Serious: Yes (Hospitalization)
  Sender: PFIZER
  Company Number: US-PFIZER INC-PV202400161118

PATIENT
  Age: 80 Year
  Sex: Female
  Weight: 73.469 kg

DRUGS (4)
  1. IBRANCE [Suspect]
     Active Substance: PALBOCICLIB
     Indication: Breast cancer metastatic
     Route: 048
     Dates: start: 20230702
  2. IBRANCE [Suspect]
     Active Substance: PALBOCICLIB
     Route: 048
  3. IBRANCE [Suspect]
     Active Substance: PALBOCICLIB
     Route: 048
  4. LETROZOLE [Concomitant]
     Active Substance: LETROZOLE

REACTIONS (2)
  - COVID-19 [Not Recovered/Not Resolved]
  - Tumour marker increased [Unknown]
